FAERS Safety Report 4785778-X (Version None)
Quarter: 2005Q3

REPORT INFORMATION
  Report Type: 
  Country: None (occurrence: None)
  Receive Date: 20050929
  Receipt Date: 20050809
  Transmission Date: 20060218
  Serious: Yes (Other)
  Sender: FDA-Public Use
  Company Number: 8360

PATIENT
  Sex: Female

DRUGS (2)
  1. SEPTOCAINE [Suspect]
     Indication: LOCAL ANAESTHESIA
     Dosage: 2 CARPULES INJECTED
  2. BENZOCAINE 20% [Suspect]
     Indication: APPLICATION SITE ANAESTHESIA
     Dosage: TOPICAL
     Route: 061

REACTIONS (5)
  - AGEUSIA [None]
  - BURNING SENSATION [None]
  - IMMOBILE [None]
  - PARAESTHESIA [None]
  - PARAESTHESIA ORAL [None]
